FAERS Safety Report 7936661-X (Version None)
Quarter: 2011Q4

REPORT INFORMATION
  Report Type: 
  Country: None (occurrence: None)
  Receive Date: 20111123
  Receipt Date: 20111116
  Transmission Date: 20120403
  Serious: Yes (Other)
  Sender: FDA-Public Use
  Company Number: US-UCBSA-045884

PATIENT
  Age: 42 Year
  Sex: Female

DRUGS (8)
  1. CARBAMAZEPINE [Concomitant]
     Indication: CONVULSION
  2. DIVALPROEX SODIUM [Concomitant]
     Indication: CONVULSION
  3. DILANTIN [Concomitant]
     Indication: CONVULSION
  4. TOPIRAMATE [Concomitant]
     Indication: CONVULSION
  5. ZONISAMIDE [Concomitant]
     Indication: CONVULSION
     Dosage: DAILY: 400MG
     Route: 048
     Dates: start: 20050701
  6. LAMOTRIGINE [Concomitant]
     Indication: CONVULSION
     Dosage: DAILY: 500MG
     Dates: start: 20040701
  7. LEVETIRACETAM [Suspect]
     Indication: CONVULSION
  8. PHENYTOIN [Concomitant]
     Indication: CONVULSION

REACTIONS (2)
  - PHOTOPHOBIA [None]
  - SOMNOLENCE [None]
